FAERS Safety Report 17255909 (Version 6)
Quarter: 2020Q2

REPORT INFORMATION
  Report Type: Report from Study
  Country: CN (occurrence: CN)
  Receive Date: 20200110
  Receipt Date: 20200504
  Transmission Date: 20200713
  Serious: Yes (Hospitalization)
  Sender: FDA-Public Use
  Company Number: CN-ROCHE-2516738

PATIENT
  Age: 66 Year
  Sex: Male
  Weight: 67 kg

DRUGS (7)
  1. ENTECAVIR. [Concomitant]
     Active Substance: ENTECAVIR
     Route: 065
     Dates: start: 201707
  2. BEVACIZUMAB. [Suspect]
     Active Substance: BEVACIZUMAB
     Indication: HEPATOCELLULAR CARCINOMA
     Dosage: DATE OF MOST RECENT DOSE (960 MG) OF BEVACIZUMAB PRIOR TO EVENT ONSET 20/DEC/2019
     Route: 042
     Dates: start: 20190125
  3. COMPOUND PHOLCODINE [Concomitant]
     Indication: COUGH
     Route: 048
     Dates: start: 20200110, end: 20200112
  4. COMPOUND PHOLCODINE [Concomitant]
     Indication: UPPER RESPIRATORY TRACT INFECTION
     Route: 065
     Dates: start: 20191216, end: 201912
  5. ALLISARTAN ISOPROXIL [Concomitant]
     Indication: BLOOD PRESSURE MEASUREMENT
     Route: 048
     Dates: start: 20190110, end: 202002
  6. NIFEDIPINE. [Concomitant]
     Active Substance: NIFEDIPINE
     Indication: BLOOD PRESSURE MEASUREMENT
     Route: 048
     Dates: start: 20190110
  7. ATEZOLIZUMAB. [Suspect]
     Active Substance: ATEZOLIZUMAB
     Indication: HEPATOCELLULAR CARCINOMA
     Dosage: DATE OF MOST RECENT DOSE OF ATEZOLIZUMAB PRIOR TO EVENT ONSET 20/DEC/2019
     Route: 042
     Dates: start: 20190125

REACTIONS (1)
  - Upper gastrointestinal haemorrhage [Recovered/Resolved]

NARRATIVE: CASE EVENT DATE: 20200101
